FAERS Safety Report 4332983-2 (Version None)
Quarter: 2004Q1

REPORT INFORMATION
  Report Type: 
  Country: None (occurrence: None)
  Receive Date: 20040330
  Receipt Date: 20040316
  Transmission Date: 20041129
  Serious: Yes (Disabling, Other)
  Sender: FDA-Public Use
  Company Number: US-SHR-04-022948

PATIENT
  Age: 43 Year
  Sex: Female

DRUGS (2)
  1. LEUKINE [Suspect]
     Indication: MULTIPLE MYELOMA
     Dates: start: 20040128
  2. MULTIPLE SYNTHETIC MELANOMA PEPTIDES: MEL (43) [Suspect]
     Indication: MULTIPLE MYELOMA
     Dosage: 2 ML, 1X/WEEKX6 OVER 8 WEEKS, SUBCUTANEOUS
     Route: 058
     Dates: start: 20040128

REACTIONS (1)
  - PNEUMONITIS [None]
